FAERS Safety Report 18559786 (Version 1)
Quarter: 2020Q4

REPORT INFORMATION
  Report Type: Spontaneous
  Country: CA (occurrence: CA)
  Receive Date: 20201130
  Receipt Date: 20201130
  Transmission Date: 20210114
  Serious: Yes (Death, Other)
  Sender: FDA-Public Use
  Company Number: CA-GLAXOSMITHKLINE-CA2020GSK235889

PATIENT
  Sex: Male

DRUGS (1)
  1. AVANDIA [Suspect]
     Active Substance: ROSIGLITAZONE MALEATE
     Indication: DIABETES MELLITUS
     Dosage: 40 MG, QD
     Route: 065
     Dates: start: 20040707, end: 20190617

REACTIONS (8)
  - Cardiac failure [Unknown]
  - Ischaemic cardiomyopathy [Unknown]
  - Dyspnoea [Unknown]
  - Cardiac disorder [Unknown]
  - Myocardial infarction [Unknown]
  - Death [Fatal]
  - Coronary artery bypass [Unknown]
  - Pericarditis [Unknown]
